FAERS Safety Report 13755096 (Version 1)
Quarter: 2017Q3

REPORT INFORMATION
  Report Type: Spontaneous
  Country: FR (occurrence: FR)
  Receive Date: 20170714
  Receipt Date: 20170714
  Transmission Date: 20171127
  Serious: Yes (Hospitalization)
  Sender: FDA-Public Use
  Company Number: FR-ASTRAZENECA-2017SE71662

PATIENT
  Age: 56 Year
  Sex: Male

DRUGS (14)
  1. BRILIQUE [Suspect]
     Active Substance: TICAGRELOR
     Indication: ACUTE CORONARY SYNDROME
     Route: 048
     Dates: start: 201603, end: 20170623
  2. DALTEPARIN SODIUM [Suspect]
     Active Substance: DALTEPARIN SODIUM
     Indication: PROPHYLAXIS
     Dosage: 5000 UNKNOWN DAILY
     Route: 058
     Dates: start: 20170620, end: 20170623
  3. CARAFATE [Concomitant]
     Active Substance: SUCRALFATE
     Route: 048
  4. BISOPROLOL [Concomitant]
     Active Substance: BISOPROLOL
     Route: 048
  5. CETORNAN [Concomitant]
     Route: 048
  6. ATORVASTATIN [Concomitant]
     Active Substance: ATORVASTATIN
     Route: 048
  7. OFLOXACIN. [Concomitant]
     Active Substance: OFLOXACIN
     Indication: URINARY TRACT INFECTION
     Route: 048
     Dates: start: 20170621
  8. TAMSULOSIN [Concomitant]
     Active Substance: TAMSULOSIN
     Route: 048
  9. TRAMADOL. [Concomitant]
     Active Substance: TRAMADOL
     Route: 048
     Dates: start: 20170617
  10. KARDEGIC [Suspect]
     Active Substance: ASPIRIN LYSINE
     Indication: ACUTE CORONARY SYNDROME
     Route: 048
     Dates: start: 201603, end: 20170623
  11. RAMIPRIL. [Concomitant]
     Active Substance: RAMIPRIL
     Route: 048
  12. LYRICA [Concomitant]
     Active Substance: PREGABALIN
     Route: 048
  13. OFLOXACIN. [Concomitant]
     Active Substance: OFLOXACIN
     Indication: URINARY TRACT INFECTION
     Route: 048
  14. EUPRESSYL [Concomitant]
     Active Substance: URAPIDIL
     Route: 048

REACTIONS (2)
  - Anaemia [Recovering/Resolving]
  - Haematemesis [Recovering/Resolving]

NARRATIVE: CASE EVENT DATE: 20170623
